FAERS Safety Report 5512657-2 (Version None)
Quarter: 2007Q4

REPORT INFORMATION
  Report Type: 
  Country: None (occurrence: None)
  Receive Date: 20071108
  Receipt Date: 20071025
  Transmission Date: 20080405
  Serious: Yes (Death)
  Sender: FDA-Public Use
  Company Number: US021533

PATIENT
  Age: 40 Year
  Sex: Female

DRUGS (5)
  1. ACTIQ [Suspect]
     Indication: FIBROMYALGIA
     Dosage: 1600 UG TID BUCCAL
     Route: 002
     Dates: end: 20070201
  2. ACTIQ [Suspect]
     Indication: RHEUMATOID ARTHRITIS
     Dosage: 1600 UG TID BUCCAL
     Route: 002
     Dates: end: 20070201
  3. DURAGESIC-100 [Suspect]
     Indication: FIBROMYALGIA
     Dosage: 75 UG Q72HR TRANSDERMAL
     Route: 062
     Dates: end: 20070201
  4. DURAGESIC-100 [Suspect]
     Indication: RHEUMATOID ARTHRITIS
     Dosage: 75 UG Q72HR TRANSDERMAL
     Route: 062
     Dates: end: 20070201
  5. MORPHINE [Concomitant]

REACTIONS (7)
  - ACCIDENT [None]
  - APNOEA [None]
  - DRUG TOXICITY [None]
  - ELECTROLYTE IMBALANCE [None]
  - METABOLIC DISORDER [None]
  - PAIN [None]
  - RESPIRATORY DISORDER [None]
